FAERS Safety Report 7638276-X (Version None)
Quarter: 2011Q3

REPORT INFORMATION
  Report Type: 
  Country: None (occurrence: None)
  Receive Date: 20110727
  Receipt Date: 20110718
  Transmission Date: 20111222
  Serious: Yes (Death)
  Sender: FDA-Public Use
  Company Number: IN-BRISTOL-MYERS SQUIBB COMPANY-15908007

PATIENT
  Age: 69 Year
  Sex: Female

DRUGS (2)
  1. DOXORUBICIN HCL [Suspect]
     Indication: BREAST CANCER
     Dosage: 1DF= 60 MG/M SUP (2)
  2. PACLITAXEL [Suspect]
     Indication: BREAST CANCER
     Dosage: 1DF= 200MG/M SUP (2)

REACTIONS (1)
  - CHRONIC LYMPHOCYTIC LEUKAEMIA [None]
